FAERS Safety Report 8342761-5 (Version None)
Quarter: 2012Q2

REPORT INFORMATION
  Report Type: 
  Country: None (occurrence: None)
  Receive Date: 20120503
  Receipt Date: 20120316
  Transmission Date: 20120825
  Serious: Yes (Other)
  Sender: FDA-Public Use
  Company Number: 2135225-2012-00045

PATIENT
  Age: 28 Year
  Sex: Male

DRUGS (2)
  1. LIDOCAINE [Concomitant]
  2. VISIPAQUE [Suspect]
     Indication: PRODUCT USED FOR UNKNOWN INDICATION
     Dosage: 5 ML SINGLE TAKING

REACTIONS (2)
  - MALAISE [None]
  - BRADYCARDIA [None]
